FAERS Safety Report 9445746 (Version 1)
Quarter: 2013Q3

REPORT INFORMATION
  Report Type: Spontaneous
  Country: PH (occurrence: PH)
  Receive Date: 20130807
  Receipt Date: 20130807
  Transmission Date: 20140515
  Serious: Yes (Life-Threatening, Hospitalization, Other)
  Sender: FDA-Public Use
  Company Number: PH-BRISTOL-MYERS SQUIBB COMPANY-19167626

PATIENT
  Age: 21 Year
  Sex: Male
  Weight: 56 kg

DRUGS (1)
  1. ABILIFY TABS [Suspect]
     Indication: AUTISM
     Route: 048
     Dates: start: 20130521, end: 20130528

REACTIONS (1)
  - Blood creatine phosphokinase increased [Recovered/Resolved]
